FAERS Safety Report 25619338 (Version 2)
Quarter: 2025Q3

REPORT INFORMATION
  Report Type: Spontaneous
  Country: SG (occurrence: SG)
  Receive Date: 20250729
  Receipt Date: 20250901
  Transmission Date: 20251020
  Serious: Yes (Other)
  Sender: SLATE RUN
  Company Number: SG-SLATERUN-2025SRLIT00114

PATIENT
  Sex: Male

DRUGS (2)
  1. VANCOMYCIN [Suspect]
     Active Substance: VANCOMYCIN
     Indication: Pyelonephritis
     Route: 042
  2. AZTREONAM [Suspect]
     Active Substance: AZTREONAM
     Indication: Drug hypersensitivity
     Route: 042

REACTIONS (1)
  - Liver injury [Recovering/Resolving]
